FAERS Safety Report 7176440-7 (Version None)
Quarter: 2010Q4

REPORT INFORMATION
  Report Type: 
  Country: None (occurrence: None)
  Receive Date: 20101215
  Receipt Date: 20101215
  Transmission Date: 20110411
  Serious: No
  Sender: FDA-Public Use
  Company Number: None

PATIENT
  Age: 44 Year
  Sex: Female
  Weight: 67.586 kg

DRUGS (1)
  1. VIGAMOX [Suspect]
     Indication: EYE INFECTION
     Dosage: 1 DROP ONCE
     Dates: start: 20101209

REACTIONS (12)
  - CHEST DISCOMFORT [None]
  - DIZZINESS [None]
  - EAR PAIN [None]
  - EYE IRRITATION [None]
  - EYE PAIN [None]
  - HEADACHE [None]
  - OROPHARYNGEAL PAIN [None]
  - PRURITUS [None]
  - PYREXIA [None]
  - SINUS CONGESTION [None]
  - SINUS HEADACHE [None]
  - VISION BLURRED [None]
